FAERS Safety Report 25019715 (Version 2)
Quarter: 2025Q1

REPORT INFORMATION
  Report Type: Spontaneous
  Country: US (occurrence: US)
  Receive Date: 20250227
  Receipt Date: 20250306
  Transmission Date: 20250409
  Serious: No
  Sender: BIOGEN
  Company Number: US-BIOGEN-2025BI01302315

PATIENT
  Sex: Female

DRUGS (16)
  1. TECFIDERA [Suspect]
     Active Substance: DIMETHYL FUMARATE
     Indication: Multiple sclerosis
     Route: 050
  2. ADVIL [Concomitant]
     Active Substance: IBUPROFEN
     Route: 050
  3. BUMEX [Concomitant]
     Active Substance: BUMETANIDE
     Route: 050
  4. MACRODANTIN [Concomitant]
     Active Substance: NITROFURANTOIN
     Route: 050
  5. OCREVUS [Concomitant]
     Active Substance: OCRELIZUMAB
     Route: 050
  6. TYLENOL [Concomitant]
     Active Substance: ACETAMINOPHEN
     Route: 050
  7. BACLOFEN [Concomitant]
     Active Substance: BACLOFEN
     Route: 050
  8. VITAMIN B12 [Concomitant]
     Active Substance: CYANOCOBALAMIN
     Route: 050
  9. MENAQUINONE 6 [Concomitant]
     Active Substance: MENAQUINONE 6
     Route: 050
  10. EZETIMIBE [Concomitant]
     Active Substance: EZETIMIBE
     Route: 050
  11. SIMVASTATIN [Concomitant]
     Active Substance: SIMVASTATIN
     Route: 050
  12. GINGER [Concomitant]
     Active Substance: GINGER
     Route: 050
  13. LIOTHYRONINE [Concomitant]
     Active Substance: LIOTHYRONINE
     Route: 050
  14. MAGNESIUM [Concomitant]
     Active Substance: MAGNESIUM
     Route: 050
  15. NAPROXEN [Concomitant]
     Active Substance: NAPROXEN
     Route: 050
  16. HERBALS\TURMERIC [Concomitant]
     Active Substance: HERBALS\TURMERIC
     Route: 050

REACTIONS (1)
  - Drug intolerance [Unknown]
